FAERS Safety Report 8822809 (Version 2)
Quarter: 2015Q2

REPORT INFORMATION
  Report Type: Report from Study
  Country: US (occurrence: US)
  Receive Date: 20121003
  Receipt Date: 20150420
  Transmission Date: 20150821
  Serious: Yes (Death, Hospitalization)
  Sender: FDA-Public Use
  Company Number: US-ROCHE-1130995

PATIENT
  Age: 86 Year
  Sex: Male
  Weight: 74 kg

DRUGS (34)
  1. NOVOLIN R [Concomitant]
     Active Substance: INSULIN HUMAN
     Dosage: 10 UNITS WITH MEALS
     Route: 058
  2. NEUPOGEN [Concomitant]
     Active Substance: FILGRASTIM
     Route: 065
  3. EPOGEN [Concomitant]
     Active Substance: ERYTHROPOIETIN
     Dosage: SOLUTION, EVERY FRIDAY
     Route: 058
  4. DIABETA [Concomitant]
     Active Substance: GLYBURIDE
     Dosage: EVERY EVENING
     Route: 048
  5. RITUXAN [Suspect]
     Active Substance: RITUXIMAB
     Indication: NEPHROGENIC ANAEMIA
  6. NOVOLIN R [Concomitant]
     Active Substance: INSULIN HUMAN
     Dosage: BEFORE MEAL
     Route: 058
  7. XOPENEX [Concomitant]
     Active Substance: LEVALBUTEROL HYDROCHLORIDE
     Dosage: INHALER, 1 INHALATION, 0.63 MG SAMLL VOLUME NEBULISER, EVERY DAY
     Route: 065
  8. PREDNISONE. [Concomitant]
     Active Substance: PREDNISONE
     Dosage: EVERY AM
     Route: 048
  9. HALFPRIN [Concomitant]
     Dosage: BY MOUTH
     Route: 048
  10. BECONASE AQ [Concomitant]
     Active Substance: BECLOMETHASONE DIPROPIONATE MONOHYDRATE
     Dosage: NASAL INHALER, 2 SPRAY
     Route: 065
  11. SENOKOT [Concomitant]
     Active Substance: SENNOSIDES
     Route: 065
  12. FLONASE (UNITED STATES) [Concomitant]
     Dosage: 2 SPRAYS EACH NOSTRIL EVERY DAY
     Route: 065
  13. RITUXAN [Suspect]
     Active Substance: RITUXIMAB
     Indication: HYPOGAMMAGLOBULINAEMIA
  14. PROTONIX (UNITED STATES) [Concomitant]
     Route: 048
  15. DIOVAN [Concomitant]
     Active Substance: VALSARTAN
  16. PERI-COLACE (UNITED STATES) [Concomitant]
     Dosage: BEDTIME
     Route: 048
  17. BENADRYL [Concomitant]
     Active Substance: DIPHENHYDRAMINE HYDROCHLORIDE
     Dosage: RECEIVED ON 21/MAR/2008, 28/MAR/2008
     Route: 065
  18. PREDNISONE. [Concomitant]
     Active Substance: PREDNISONE
     Dosage: WITH MEALS
     Route: 048
  19. RITUXAN [Suspect]
     Active Substance: RITUXIMAB
     Indication: HYPOGAMMAGLOBULINAEMIA
     Dosage: RECEIVED ON 07/MAR/2008, 14/MAR/2008, 21/MAR/2008, 28/MAR/2008
     Route: 042
  20. PERCOCET [Concomitant]
     Active Substance: ACETAMINOPHEN\OXYCODONE HYDROCHLORIDE
  21. BENICAR [Concomitant]
     Active Substance: OLMESARTAN MEDOXOMIL
  22. TYLENOL [Concomitant]
     Active Substance: ACETAMINOPHEN
     Dosage: RECEIVED ON 21/MAR/2008, 28/MAR/2008
     Route: 065
  23. ZYLOPRIM [Concomitant]
     Active Substance: ALLOPURINOL
     Dosage: BY MOUTH EVERY DAY
     Route: 048
  24. DIABETA [Concomitant]
     Active Substance: GLYBURIDE
     Dosage: EVERY AM
     Route: 048
  25. RITUXAN [Suspect]
     Active Substance: RITUXIMAB
     Indication: NEPHROGENIC ANAEMIA
  26. ADVAIR HFA [Concomitant]
     Active Substance: FLUTICASONE PROPIONATE\SALMETEROL XINAFOATE
     Dosage: INHALER, 1 PUFF
     Route: 065
  27. PROCRIT [Concomitant]
     Active Substance: ERYTHROPOIETIN
     Dosage: RECEIVED ON 21/MAR/2008
     Route: 065
  28. NEXIUM [Concomitant]
     Active Substance: ESOMEPRAZOLE MAGNESIUM
     Dosage: BY MOUTH
     Route: 065
  29. SOLU-MEDROL [Concomitant]
     Active Substance: METHYLPREDNISOLONE SODIUM SUCCINATE
     Route: 065
  30. RITUXAN [Suspect]
     Active Substance: RITUXIMAB
     Indication: OFF LABEL USE
  31. FOLIC ACID. [Concomitant]
     Active Substance: FOLIC ACID
     Route: 048
  32. TOBI [Concomitant]
     Active Substance: TOBRAMYCIN
     Dosage: INHALER
     Route: 065
  33. NEURONTIN [Concomitant]
     Active Substance: GABAPENTIN
     Route: 048
  34. LEVOFLOXACIN. [Concomitant]
     Active Substance: LEVOFLOXACIN
     Route: 048

REACTIONS (5)
  - Death [Fatal]
  - Rhonchi [Unknown]
  - Fatigue [Unknown]
  - Haemolytic anaemia [Unknown]
  - Haemoglobin decreased [Recovering/Resolving]

NARRATIVE: CASE EVENT DATE: 200805
